FAERS Safety Report 9088692 (Version 1)
Quarter: 2013Q1

REPORT INFORMATION
  Report Type: Spontaneous
  Country: PT (occurrence: PT)
  Receive Date: 20130201
  Receipt Date: 20130201
  Transmission Date: 20140127
  Serious: Yes (Other)
  Sender: FDA-Public Use
  Company Number: PT-TEVA-382653ISR

PATIENT
  Age: 77 Year
  Sex: Male
  Weight: 70 kg

DRUGS (4)
  1. INSULIN [Concomitant]
  2. ATORVASTATINE [Concomitant]
     Dosage: 20 MILLIGRAM DAILY;
     Route: 048
  3. SINEMET 25/100MG [Concomitant]
     Dosage: LEVODOPA 25 MG AND CARBIDOPA 100 MG
     Route: 048
  4. CIPROFLOXACINA [Suspect]
     Indication: RESPIRATORY TRACT INFECTION

REACTIONS (1)
  - Oedema peripheral [Not Recovered/Not Resolved]
